FAERS Safety Report 22639432 (Version 2)
Quarter: 2023Q4

REPORT INFORMATION
  Report Type: Spontaneous
  Country: FR (occurrence: FR)
  Receive Date: 20230626
  Receipt Date: 20231011
  Transmission Date: 20240109
  Serious: Yes (Death, Hospitalization, Other)
  Sender: FDA-Public Use
  Company Number: None

PATIENT
  Age: 61 Year
  Sex: Male
  Weight: 71 kg

DRUGS (3)
  1. CYCLOPHOSPHAMIDE [Suspect]
     Active Substance: CYCLOPHOSPHAMIDE
     Indication: Plasma cell myeloma
     Dosage: 516 MG, ONCE A DAY
     Route: 042
     Dates: start: 20230324, end: 20230326
  2. ABECMA [Suspect]
     Active Substance: IDECABTAGENE VICLEUCEL
     Indication: Plasma cell myeloma
     Dosage: 1 DOSAGE FOM, DOSAGE FORM: 260-500 X 1 000 000 CELLS, (MAMMAL/HUMAN/PERIPHERAL BLOOD)
     Route: 042
     Dates: start: 20230329
  3. FLUDARABINE PHOSPHATE [Suspect]
     Active Substance: FLUDARABINE PHOSPHATE
     Indication: Plasma cell myeloma
     Dosage: 51.6 MG, ONCE A DAY
     Route: 042
     Dates: start: 20230324, end: 20230326

REACTIONS (2)
  - Parkinsonism [Not Recovered/Not Resolved]
  - Sepsis [Fatal]

NARRATIVE: CASE EVENT DATE: 20230515
